FAERS Safety Report 5180264-X (Version None)
Quarter: 2006Q4

REPORT INFORMATION
  Report Type: 
  Country: None (occurrence: None)
  Receive Date: 20061212
  Receipt Date: 20061128
  Transmission Date: 20070319
  Serious: Yes (Hospitalization)
  Sender: FDA-Public Use
  Company Number: 2006RR-04691

PATIENT
  Age: 16 Year
  Sex: Male

DRUGS (1)
  1. CEPHALEXIN [Suspect]
     Indication: PARONYCHIA
     Dosage: 750 MG, BID, UNK

REACTIONS (3)
  - AFFECT LABILITY [None]
  - AKATHISIA [None]
  - DELIRIUM [None]
